FAERS Safety Report 12216418 (Version 1)
Quarter: 2016Q1

REPORT INFORMATION
  Report Type: Spontaneous
  Country: US (occurrence: None)
  Receive Date: 20160328
  Receipt Date: 20160328
  Transmission Date: 20160526
  Serious: Yes (Death, Hospitalization, Disabling)
  Sender: FDA-Public Use
  Company Number: None

PATIENT
  Age: 68 Year
  Sex: Male
  Weight: 108.86 kg

DRUGS (7)
  1. VITAMIN B12 [Concomitant]
     Active Substance: CYANOCOBALAMIN
  2. IPILIMUMAB [Suspect]
     Active Substance: IPILIMUMAB
     Indication: CHOROID MELANOMA
     Route: 042
     Dates: start: 20151221, end: 20151221
  3. TYLENOL [Concomitant]
     Active Substance: ACETAMINOPHEN
  4. ALEVE [Concomitant]
     Active Substance: NAPROXEN SODIUM
  5. ATENOLOL. [Concomitant]
     Active Substance: ATENOLOL
  6. GLAUCOMA EYE DROPS [Concomitant]
  7. ASPIRIN. [Concomitant]
     Active Substance: ASPIRIN

REACTIONS (10)
  - Abdominal distension [None]
  - Liver function test increased [None]
  - Subdural haematoma [None]
  - Fall [None]
  - Blood uric acid increased [None]
  - Subarachnoid haemorrhage [None]
  - Asthenia [None]
  - Jaundice [None]
  - Tumour lysis syndrome [None]
  - Oedema [None]

NARRATIVE: CASE EVENT DATE: 20151221
